FAERS Safety Report 23526543 (Version 1)
Quarter: 2024Q1

REPORT INFORMATION
  Report Type: Spontaneous
  Country: US (occurrence: None)
  Receive Date: 20240214
  Receipt Date: 20240214
  Transmission Date: 20240409
  Serious: Yes (Other)
  Sender: FDA-Public Use
  Company Number: None

PATIENT
  Age: 72 Year
  Sex: Female
  Weight: 90 kg

DRUGS (10)
  1. OFLOXACIN [Suspect]
     Active Substance: OFLOXACIN
     Indication: Otitis media
     Dosage: 5 DROPS AT BEDTIME AURICULAR
     Route: 001
     Dates: start: 20240118, end: 20240124
  2. ADVAIR HFA [Concomitant]
     Active Substance: FLUTICASONE PROPIONATE\SALMETEROL XINAFOATE
  3. zarfilukast [Concomitant]
  4. QNASL [Concomitant]
     Active Substance: BECLOMETHASONE DIPROPIONATE
  5. VITAMINS [Concomitant]
     Active Substance: VITAMINS
  6. VITAMIN D [Concomitant]
     Active Substance: VITAMIN D NOS
  7. CRANBERRY [Concomitant]
     Active Substance: CRANBERRY
  8. COD LIVER OIL [Concomitant]
     Active Substance: COD LIVER OIL
  9. calcium tablets [Concomitant]
  10. MAGNESIUM [Concomitant]
     Active Substance: MAGNESIUM

REACTIONS (5)
  - Ear haemorrhage [None]
  - Ear pain [None]
  - Pruritus [None]
  - Ear discomfort [None]
  - Sinusitis [None]

NARRATIVE: CASE EVENT DATE: 20240122
